FAERS Safety Report 18638836 (Version 1)
Quarter: 2020Q4

REPORT INFORMATION
  Report Type: Spontaneous
  Country: HR (occurrence: HR)
  Receive Date: 20201219
  Receipt Date: 20201219
  Transmission Date: 20210114
  Serious: Yes (Other)
  Sender: FDA-Public Use
  Company Number: HR-ACCORD-211390

PATIENT
  Sex: Female

DRUGS (3)
  1. DEPAKINE CHRONO [Suspect]
     Active Substance: VALPROATE SODIUM
     Dosage: 1 PACK
     Route: 048
     Dates: start: 202011, end: 202011
  2. QUETIAPINE. [Suspect]
     Active Substance: QUETIAPINE
     Route: 048
     Dates: start: 202011, end: 202011
  3. APAURIN [Suspect]
     Active Substance: DIAZEPAM
     Dosage: SEVERAL TABLETS
     Route: 048
     Dates: start: 202011, end: 202011

REACTIONS (4)
  - Suicide attempt [Unknown]
  - Somnolence [Unknown]
  - Snoring [Unknown]
  - Intentional overdose [Unknown]

NARRATIVE: CASE EVENT DATE: 202011
